FAERS Safety Report 25148458 (Version 1)
Quarter: 2025Q2

REPORT INFORMATION
  Report Type: Spontaneous
  Country: PL (occurrence: PL)
  Receive Date: 20250402
  Receipt Date: 20250402
  Transmission Date: 20250717
  Serious: Yes (Other)
  Sender: ABBVIE
  Company Number: PL-JNJFOC-20250377581

PATIENT
  Age: 47 Year
  Sex: Male

DRUGS (6)
  1. IMBRUVICA [Suspect]
     Active Substance: IBRUTINIB
     Indication: Chronic lymphocytic leukaemia
     Route: 048
     Dates: start: 20240425
  2. VENETOCLAX [Suspect]
     Active Substance: VENETOCLAX
     Indication: Lymphocytic lymphoma
     Route: 048
  3. VENETOCLAX [Suspect]
     Active Substance: VENETOCLAX
     Indication: Lymphocytic lymphoma
     Route: 048
     Dates: start: 20240425
  4. VENETOCLAX [Suspect]
     Active Substance: VENETOCLAX
     Indication: Lymphocytic lymphoma
     Route: 048
  5. VENETOCLAX [Suspect]
     Active Substance: VENETOCLAX
     Indication: Lymphocytic lymphoma
     Route: 048
  6. VENETOCLAX [Suspect]
     Active Substance: VENETOCLAX
     Indication: Lymphocytic lymphoma
     Route: 048

REACTIONS (2)
  - Pneumocystis jirovecii infection [Unknown]
  - Herpes virus infection [Unknown]
